FAERS Safety Report 10006730 (Version 1)
Quarter: 2014Q1

REPORT INFORMATION
  Report Type: Spontaneous
  Country: GB (occurrence: GB)
  Receive Date: 20140313
  Receipt Date: 20140313
  Transmission Date: 20141002
  Serious: Yes (Hospitalization)
  Sender: FDA-Public Use
  Company Number: GB-BANPHARM-20142370

PATIENT
  Age: 15 Year
  Sex: Male
  Weight: 67 kg

DRUGS (1)
  1. IBUPROFEN UNKNOWN PRODUCT [Suspect]
     Dosage: 400 MG,
     Route: 048

REACTIONS (1)
  - Renal failure acute [Recovered/Resolved]
